FAERS Safety Report 20110173 (Version 1)
Quarter: 2021Q4

REPORT INFORMATION
  Report Type: Spontaneous
  Country: US (occurrence: US)
  Receive Date: 20211124
  Receipt Date: 20211124
  Transmission Date: 20220303
  Serious: Yes (Other)
  Sender: FDA-Public Use
  Company Number: US-PROCTER+GAMBLE-PH21010166

PATIENT
  Sex: Male

DRUGS (1)
  1. PEPTO-BISMOL ULTRA [Suspect]
     Active Substance: BISMUTH SUBSALICYLATE
     Dosage: UNK FOR 2 WEEKS
     Route: 048
     Dates: start: 202110, end: 202111

REACTIONS (2)
  - Seizure [Recovered/Resolved]
  - Incorrect product administration duration [Unknown]

NARRATIVE: CASE EVENT DATE: 20210101
